FAERS Safety Report 6369266-5 (Version None)
Quarter: 2009Q3

REPORT INFORMATION
  Report Type: 
  Country: None (occurrence: None)
  Receive Date: 20090916
  Receipt Date: 20090908
  Transmission Date: 20100115
  Serious: Yes (Hospitalization, Disabling)
  Sender: FDA-Public Use
  Company Number: ADR20772009

PATIENT
  Age: 21 Year
  Sex: Female

DRUGS (3)
  1. SERTRALINE HCL [Suspect]
     Indication: DEPRESSION
     Dosage: 50MG
     Route: 048
     Dates: start: 20070206, end: 20070214
  2. PROZAC [Concomitant]
  3. SLOW-K [Concomitant]

REACTIONS (2)
  - ARRHYTHMIA [None]
  - SYNCOPE [None]
